FAERS Safety Report 26042288 (Version 2)
Quarter: 2025Q4

REPORT INFORMATION
  Report Type: Spontaneous
  Country: EU (occurrence: EU)
  Receive Date: 20251113
  Receipt Date: 20251128
  Transmission Date: 20260117
  Serious: Yes (Other)
  Sender: RHYTHM PHARMACEUTICALS
  Company Number: EU-RHYTHM PHARMACEUTICALS NETHERLANDS B.V-2025RHM000345

PATIENT

DRUGS (21)
  1. IMCIVREE [Suspect]
     Active Substance: SETMELANOTIDE
     Indication: Hypothalamic obesity
     Dosage: 0.5 MILLIGRAM, QD
     Dates: start: 20250527
  2. IMCIVREE [Suspect]
     Active Substance: SETMELANOTIDE
     Dosage: 0.8 MILLIGRAM, QD (DAY 15 VISIT)
     Route: 058
     Dates: start: 20250610
  3. IMCIVREE [Suspect]
     Active Substance: SETMELANOTIDE
     Dosage: 1 MILLIGRAM, QD (M1 VISIT FORM)
     Dates: start: 20250624
  4. IMCIVREE [Suspect]
     Active Substance: SETMELANOTIDE
     Dosage: 1.2 MILLIGRAM, QD (M2 VISIT FORM)
     Dates: start: 20250722
  5. IMCIVREE [Suspect]
     Active Substance: SETMELANOTIDE
     Dosage: 1.5 MILLIGRAM, QD
  6. IMCIVREE [Suspect]
     Active Substance: SETMELANOTIDE
     Dosage: 2 MILLIGRAM, QD
  7. IMCIVREE [Suspect]
     Active Substance: SETMELANOTIDE
     Dosage: 2.5 MILLIGRAM, QD FOR FOUR WEEKS
  8. IMCIVREE [Suspect]
     Active Substance: SETMELANOTIDE
     Dosage: 3 MILLIGRAM, QD
  9. Testosterone Besins [Concomitant]
     Indication: Gonadotrophin deficiency
     Dosage: 1 DOSAGE FORM  (1 VIAL / 12 WEEKS)
     Route: 030
     Dates: start: 202503
  10. HYDROCORTISONE [Concomitant]
     Active Substance: HYDROCORTISONE
     Indication: Adrenal insufficiency
     Dosage: 10 MILLIGRAM, BID (EVENING AND NOON)
     Route: 048
     Dates: start: 2017
  11. MINIRIN [Concomitant]
     Active Substance: DESMOPRESSIN ACETATE
     Indication: Diabetes insipidus
     Dosage: 5 TIMES A DAY (60, 1-1-1-1-1)
     Route: 048
     Dates: start: 2017
  12. MINIRIN [Concomitant]
     Active Substance: DESMOPRESSIN ACETATE
     Dosage: 1 DOSAGE FORM, QD (1 IN THE EVENING)
     Route: 048
     Dates: start: 2017
  13. LEVOTHYROXINE [Concomitant]
     Active Substance: LEVOTHYROXINE
     Indication: Thyroid stimulating hormone deficiency
     Dosage: 1 IN THE MORNING (200)
     Route: 048
     Dates: start: 2017
  14. SOMATROPIN [Concomitant]
     Active Substance: SOMATROPIN
     Indication: Growth hormone deficiency
     Dosage: 0.15 MILLIGRAM, QOD
     Route: 058
     Dates: start: 2020
  15. POTASSIUM CHLORIDE [Concomitant]
     Active Substance: POTASSIUM CHLORIDE
     Indication: Hypokalaemia
     Dosage: 2 DOSAGE FORM, QD
     Route: 048
     Dates: start: 2017
  16. FENOFIBRATE [Concomitant]
     Active Substance: FENOFIBRATE
     Indication: Dyslipidaemia
     Dosage: 160 MILLIGRAM, QD (IN THE EVENING)
     Route: 048
     Dates: start: 2020
  17. ESOMEPRAZOLE [Concomitant]
     Active Substance: ESOMEPRAZOLE
     Indication: Gastrooesophageal reflux disease
     Dosage: 40 MILLIGRAM, QD
     Route: 048
     Dates: start: 2017
  18. XANAX [Concomitant]
     Active Substance: ALPRAZOLAM
     Indication: Sleep disorder
     Dosage: 0.25 MILLIGRAM, BID (AT BEDTIME)
     Dates: start: 2021
  19. MELATONIN [Concomitant]
     Active Substance: MELATONIN
     Indication: Sleep disorder
     Dosage: 1 MILLIGRAM
  20. DESMOPRESSIN [Concomitant]
     Active Substance: DESMOPRESSIN
     Indication: Diabetes insipidus
     Dosage: 60 MILLIGRAM
     Dates: start: 20251020, end: 20251022
  21. DESMOPRESSIN [Concomitant]
     Active Substance: DESMOPRESSIN
     Dosage: 120 MILLIGRAM (ONE IN THE EVENING DURING 48  HOURS)

REACTIONS (5)
  - Arthroscopy [Recovered/Resolved]
  - Off label use [Recovered/Resolved]
  - Painful erection [Not Recovered/Not Resolved]
  - Priapism [Recovered/Resolved]
  - Spontaneous penile erection [Not Recovered/Not Resolved]

NARRATIVE: CASE EVENT DATE: 20250501
